FAERS Safety Report 13146976 (Version 3)
Quarter: 2018Q1

REPORT INFORMATION
  Report Type: Report from Study
  Country: US (occurrence: US)
  Receive Date: 20170124
  Receipt Date: 20180118
  Transmission Date: 20180508
  Serious: No
  Sender: FDA-Public Use
  Company Number: US-AMGEN-USASL2016155825

PATIENT
  Age: 58 Year
  Sex: Female

DRUGS (2)
  1. REPATHA [Suspect]
     Active Substance: EVOLOCUMAB
     Dosage: 420 MG, QMO
     Route: 065
     Dates: start: 201609
  2. REPATHA [Suspect]
     Active Substance: EVOLOCUMAB
     Indication: BLOOD CHOLESTEROL ABNORMAL
     Dosage: 140 MG, Q2WK
     Route: 065
     Dates: start: 201510

REACTIONS (5)
  - Application site mass [Unknown]
  - Wrong technique in product usage process [Unknown]
  - Drug prescribing error [Unknown]
  - Application site pain [Unknown]
  - Drug dose omission [Unknown]
